FAERS Safety Report 14160417 (Version 1)
Quarter: 2017Q4

REPORT INFORMATION
  Report Type: Spontaneous
  Country: US (occurrence: US)
  Receive Date: 20171106
  Receipt Date: 20171106
  Transmission Date: 20180321
  Serious: No
  Sender: FDA-Public Use
  Company Number: US-JNJFOC-20171018173

PATIENT
  Sex: Male

DRUGS (2)
  1. CONCERTA [Suspect]
     Active Substance: METHYLPHENIDATE HYDROCHLORIDE
     Indication: ATTENTION DEFICIT/HYPERACTIVITY DISORDER
     Dosage: IN THE MORNING; STARTED IN THE END OF MAY OR JUN
     Route: 048
     Dates: start: 2017, end: 2017
  2. CONCERTA [Suspect]
     Active Substance: METHYLPHENIDATE HYDROCHLORIDE
     Indication: ATTENTION DEFICIT/HYPERACTIVITY DISORDER
     Route: 048
     Dates: start: 20170905, end: 2017

REACTIONS (7)
  - Aggression [Unknown]
  - Inappropriate schedule of drug administration [Unknown]
  - Withdrawal syndrome [Unknown]
  - Adverse reaction [Unknown]
  - Screaming [Unknown]
  - Treatment noncompliance [Unknown]
  - Off label use [Unknown]

NARRATIVE: CASE EVENT DATE: 2017
